FAERS Safety Report 7142693-4 (Version None)
Quarter: 2010Q4

REPORT INFORMATION
  Report Type: 
  Country: None (occurrence: None)
  Receive Date: 20101207
  Receipt Date: 20101124
  Transmission Date: 20110411
  Serious: Yes (Death)
  Sender: FDA-Public Use
  Company Number: JP-ABBOTT-10P-087-0686990-00

PATIENT
  Age: 86 Year
  Sex: Male

DRUGS (5)
  1. LEUPLIN SR FOR INJECTION 11.25 MG [Suspect]
     Indication: PROSTATE CANCER
     Route: 058
     Dates: start: 20080826, end: 20090804
  2. BICALUTAMIDE [Concomitant]
     Indication: PROSTATE CANCER
     Route: 048
     Dates: start: 20080625, end: 20090528
  3. PROMAC D [Concomitant]
     Indication: GASTRIC ULCER
     Route: 048
     Dates: start: 20080701, end: 20090702
  4. GASTER D [Concomitant]
     Indication: GASTRIC ULCER
     Route: 048
     Dates: start: 20080701, end: 20090811
  5. GASMOTIN [Concomitant]
     Indication: GASTRIC ULCER
     Route: 048
     Dates: start: 20080701, end: 20090819

REACTIONS (1)
  - PROSTATE CANCER [None]
